FAERS Safety Report 15668435 (Version 1)
Quarter: 2018Q4

REPORT INFORMATION
  Report Type: Spontaneous
  Country: BR (occurrence: BR)
  Receive Date: 20181129
  Receipt Date: 20181129
  Transmission Date: 20190205
  Serious: Yes (Other)
  Sender: FDA-Public Use
  Company Number: BR-SUN PHARMACEUTICAL INDUSTRIES LTD-2018RR-192234

PATIENT
  Age: 68 Year
  Sex: Male

DRUGS (5)
  1. ERLOTINIB [Suspect]
     Active Substance: ERLOTINIB
     Indication: ADENOCARCINOMA
     Dosage: 150 MILLIGRAM, DAILY
     Route: 065
  2. PEMETREXED. [Suspect]
     Active Substance: PEMETREXED
     Indication: ADENOCARCINOMA
     Route: 065
  3. TACROLIMUS. [Concomitant]
     Active Substance: TACROLIMUS
     Indication: IMMUNOSUPPRESSION
     Dosage: 2 MILLIGRAM, DAILY
     Route: 065
     Dates: start: 2012
  4. MYCOPHENOLATE MOFETIL. [Concomitant]
     Active Substance: MYCOPHENOLATE MOFETIL
     Indication: IMMUNOSUPPRESSION
     Dosage: 720 MILLIGRAM, DAILY
     Route: 065
     Dates: start: 2012
  5. CARBOPLATIN. [Suspect]
     Active Substance: CARBOPLATIN
     Indication: ADENOCARCINOMA
     Route: 065

REACTIONS (5)
  - Mediastinal disorder [Unknown]
  - Pleural disorder [Unknown]
  - Drug effect incomplete [Unknown]
  - Skin toxicity [Unknown]
  - Pleural effusion [Recovering/Resolving]
